FAERS Safety Report 6439629-8 (Version None)
Quarter: 2009Q4

REPORT INFORMATION
  Report Type: 
  Country: None (occurrence: None)
  Receive Date: 20091113
  Receipt Date: 20091110
  Transmission Date: 20100525
  Serious: Yes (Other)
  Sender: FDA-Public Use
  Company Number: US-JNJCH-2009029505

PATIENT
  Age: 65 Year
  Sex: Male
  Weight: 79.4 kg

DRUGS (4)
  1. ZYRTEC [Suspect]
     Indication: HYPERSENSITIVITY
     Route: 048
  2. DIAZEPAM [Concomitant]
     Indication: ANXIETY
     Dosage: TEXT:5 MG / 1 DAILY
     Route: 065
  3. NORVASC [Concomitant]
     Indication: BLOOD PRESSURE
     Dosage: TEXT:2.5 MG / 1 DAILY
     Route: 065
  4. CLARITIN [Concomitant]
     Indication: HYPERSENSITIVITY
     Dosage: TEXT:UNKNOWN
     Route: 065

REACTIONS (2)
  - DEPENDENCE [None]
  - PRURITUS [None]
